FAERS Safety Report 8201199-1 (Version None)
Quarter: 2012Q1

REPORT INFORMATION
  Report Type: 
  Country: None (occurrence: None)
  Receive Date: 20120312
  Receipt Date: 20120305
  Transmission Date: 20120608
  Serious: No
  Sender: FDA-Public Use
  Company Number: PHHY2010US44736

PATIENT
  Sex: Female

DRUGS (10)
  1. NAPROXEN [Concomitant]
  2. SOMA [Concomitant]
  3. TASIGNA [Suspect]
     Dosage: 150 MG, BID
     Route: 048
     Dates: start: 20110303
  4. CLONAZEPAM [Concomitant]
  5. PROZAC [Concomitant]
  6. VITAMINS WITH MINERALS [Concomitant]
  7. TASIGNA [Suspect]
     Indication: LYMPHOCYTIC LEUKAEMIA
     Dosage: 400 MG, BID
     Route: 048
     Dates: start: 20100227
  8. FLUOXETINE [Concomitant]
  9. FLUTICASONE PROPIONATE [Concomitant]
  10. NAPROXEN (ALEVE) [Concomitant]

REACTIONS (2)
  - HAEMATOCHEZIA [None]
  - FATIGUE [None]
